FAERS Safety Report 20476117 (Version 1)
Quarter: 2022Q1

REPORT INFORMATION
  Report Type: Spontaneous
  Country: US (occurrence: None)
  Receive Date: 20220215
  Receipt Date: 20220215
  Transmission Date: 20220423
  Serious: Yes (Disabling)
  Sender: FDA-Public Use
  Company Number: None

PATIENT
  Age: 52 Year
  Sex: Female
  Weight: 69.75 kg

DRUGS (8)
  1. DUPIXENT [Suspect]
     Active Substance: DUPILUMAB
     Indication: Eczema
     Dosage: OTHER QUANTITY : 1 INJECTION(S);?OTHER FREQUENCY : EVERY TWO WEEKS;?
     Route: 030
     Dates: start: 20211004, end: 20211018
  2. EYESUVIS EYE DROPS [Concomitant]
  3. LCD COAL TAR COMPOUND [Concomitant]
  4. LODOQUINOL [Concomitant]
  5. UVB PHOTOTHERAPY [Concomitant]
  6. VITAMIN D [Concomitant]
     Active Substance: VITAMIN D NOS
  7. PROBIOTICS NOS [Concomitant]
     Active Substance: PROBIOTICS NOS
  8. GUT LINING REPAIR [Concomitant]

REACTIONS (8)
  - Eye swelling [None]
  - Mouth swelling [None]
  - Oral mucosal erythema [None]
  - Ocular hyperaemia [None]
  - Eye irritation [None]
  - Oral discomfort [None]
  - Eczema nummular [None]
  - Staphylococcal skin infection [None]

NARRATIVE: CASE EVENT DATE: 20211028
